FAERS Safety Report 8354484-7 (Version None)
Quarter: 2012Q2

REPORT INFORMATION
  Report Type: 
  Country: None (occurrence: None)
  Receive Date: 20120511
  Receipt Date: 20120430
  Transmission Date: 20120825
  Serious: Yes (Other)
  Sender: FDA-Public Use
  Company Number: US-ELI_LILLY_AND_COMPANY-US201004002832

PATIENT
  Sex: Female

DRUGS (3)
  1. HUMULIN 70/30 [Suspect]
     Indication: DIABETES MELLITUS
     Dosage: 35 U, DAILY (1/D)
  2. HUMULIN 70/30 [Suspect]
     Dosage: 35 U, DAILY (1/D)
  3. HUMULIN 70/30 [Suspect]
     Dosage: 35 U, QD

REACTIONS (8)
  - VISION BLURRED [None]
  - CARDIAC PACEMAKER INSERTION [None]
  - MUSCULAR WEAKNESS [None]
  - ARTHRITIS [None]
  - CATARACT [None]
  - CARDIAC DISORDER [None]
  - MITRAL VALVE REPLACEMENT [None]
  - BLOOD PRESSURE INCREASED [None]
